FAERS Safety Report 7322498-1 (Version None)
Quarter: 2011Q1

REPORT INFORMATION
  Report Type: 
  Country: None (occurrence: None)
  Receive Date: 20110301
  Receipt Date: 20100518
  Transmission Date: 20110831
  Serious: Yes (Hospitalization, Other)
  Sender: FDA-Public Use
  Company Number: US-BAYER-200940338NA

PATIENT
  Sex: Female
  Weight: 57.727 kg

DRUGS (2)
  1. YAZ [Suspect]
     Indication: ORAL CONTRACEPTION
     Route: 048
     Dates: start: 20071026, end: 20071108
  2. XANAX [Concomitant]

REACTIONS (2)
  - PORTAL VEIN THROMBOSIS [None]
  - PAIN [None]
